FAERS Safety Report 7968905-2 (Version None)
Quarter: 2011Q4

REPORT INFORMATION
  Report Type: 
  Country: None (occurrence: None)
  Receive Date: 20111209
  Receipt Date: 20111207
  Transmission Date: 20120403
  Serious: Yes (Life-Threatening, Hospitalization)
  Sender: FDA-Public Use
  Company Number: ES-BAYER-2011-118046

PATIENT
  Age: 13 Year
  Sex: Male

DRUGS (4)
  1. METAMIZOL [Suspect]
  2. CEFOTAXIME [Suspect]
  3. DEXAMETASON [Suspect]
  4. ACETAMINOPHEN [Suspect]

REACTIONS (1)
  - STEVENS-JOHNSON SYNDROME [None]
